FAERS Safety Report 24409779 (Version 1)
Quarter: 2024Q4

REPORT INFORMATION
  Report Type: Spontaneous
  Country: US (occurrence: US)
  Receive Date: 20241008
  Receipt Date: 20241008
  Transmission Date: 20250114
  Serious: No
  Sender: MANKIND PHARMA
  Company Number: US-MankindUS-000249

PATIENT
  Sex: Male
  Weight: 62.6 kg

DRUGS (7)
  1. TOBRAMYCIN [Suspect]
     Active Substance: TOBRAMYCIN\TOBRAMYCIN SULFATE
     Indication: Product used for unknown indication
  2. ALBUTEROL [Concomitant]
     Active Substance: ALBUTEROL
  3. AMOXICILLIN [Concomitant]
     Active Substance: AMOXICILLIN
  4. ATORVASTATIN [Concomitant]
     Active Substance: ATORVASTATIN
  5. BUDESONIDE [Concomitant]
     Active Substance: BUDESONIDE
  6. ELIQUIS [Concomitant]
     Active Substance: APIXABAN
  7. FUROSEMIDE [Concomitant]
     Active Substance: FUROSEMIDE

REACTIONS (1)
  - Cough [Unknown]
